FAERS Safety Report 4930955-8 (Version None)
Quarter: 2006Q1

REPORT INFORMATION
  Report Type: 
  Country: None (occurrence: None)
  Receive Date: 20060227
  Receipt Date: 20060202
  Transmission Date: 20060701
  Serious: Yes (Hospitalization)
  Sender: FDA-Public Use
  Company Number: 221904

PATIENT
  Age: 44 Year
  Sex: Female
  Weight: 51 kg

DRUGS (3)
  1. AVASTIN [Suspect]
     Indication: COLON CANCER
     Dosage: 385 UNK, Q3W, INTRAVENOUS
     Route: 042
     Dates: start: 20060110
  2. OXALIPLATIN (OXALIPLATIN) [Suspect]
     Indication: COLON CANCER
     Dosage: 200 MG Q3W INTRAVENOUS
     Route: 042
     Dates: start: 20060110
  3. CAPECITABINE (CAPECITABINE) [Suspect]
     Indication: COLON CANCER
     Dosage: 1150 UNK BID ORAL
     Route: 048
     Dates: start: 20060110, end: 20060201

REACTIONS (3)
  - ABDOMINAL PAIN [None]
  - HYPOCALCAEMIA [None]
  - HYPOKALAEMIA [None]
